FAERS Safety Report 12322413 (Version 1)
Quarter: 2016Q2

REPORT INFORMATION
  Report Type: Spontaneous
  Country: DZ (occurrence: DZ)
  Receive Date: 20160502
  Receipt Date: 20160502
  Transmission Date: 20160815
  Serious: Yes (Death, Hospitalization)
  Sender: FDA-Public Use
  Company Number: DZ-ALEXION PHARMACEUTICALS INC-A201602810

PATIENT
  Age: 7 Month
  Sex: Male

DRUGS (3)
  1. CEFOTAXIME [Concomitant]
     Active Substance: CEFOTAXIME SODIUM
     Indication: PROPHYLAXIS
     Dosage: UNK
     Route: 065
     Dates: end: 20160403
  2. SOLIRIS [Suspect]
     Active Substance: ECULIZUMAB
     Indication: HAEMOLYTIC URAEMIC SYNDROME
     Dosage: 300 MG, Q2W
     Route: 042
     Dates: start: 20160324, end: 20160331
  3. AMOXYCILLIN                        /00249601/ [Concomitant]
     Active Substance: AMOXICILLIN
     Indication: PROPHYLAXIS
     Dosage: 25 MG/KG, UNK
     Route: 048

REACTIONS (1)
  - Respiratory disorder [Fatal]

NARRATIVE: CASE EVENT DATE: 20160405
